FAERS Safety Report 8872314 (Version 1)
Quarter: 2012Q4

REPORT INFORMATION
  Report Type: 
  Country: US (occurrence: US)
  Receive Date: 20121026
  Receipt Date: 20121026
  Transmission Date: 20130627
  Serious: No
  Sender: FDA-Public Use
  Company Number: US-AMGEN-USASP2012049260

PATIENT
  Age: 43 Year
  Sex: Female
  Weight: 99.77 kg

DRUGS (7)
  1. ENBREL [Suspect]
     Indication: PSORIASIS
     Dosage: 50 mg, 2 times/wk
     Route: 058
  2. LEVOTHYROXIN [Concomitant]
     Dosage: 100 mg, UNK
     Route: 048
  3. EFFEXOR [Concomitant]
     Dosage: 100 mg, UNK
     Route: 048
  4. NAPROSYN /00256201/ [Concomitant]
     Dosage: 500 mg, UNK
     Route: 048
  5. PRILOSEC                           /00661201/ [Concomitant]
     Dosage: 20 mg, UNK
     Route: 048
  6. BABY ASPIRIN [Concomitant]
     Dosage: 81 mg, UNK
     Route: 048
  7. MULTI-TABS                         /00958201/ [Concomitant]
     Dosage: UNK
     Route: 048

REACTIONS (1)
  - Injection site reaction [Unknown]
